FAERS Safety Report 12432655 (Version 1)
Quarter: 2016Q2

REPORT INFORMATION
  Report Type: Spontaneous
  Country: US (occurrence: None)
  Receive Date: 20160602
  Receipt Date: 20160602
  Transmission Date: 20160815
  Serious: Yes (Disabling, Other)
  Sender: FDA-Public Use
  Company Number: None

PATIENT
  Age: 74 Year
  Sex: Female
  Weight: 85.28 kg

DRUGS (8)
  1. PERCOCET [Concomitant]
     Active Substance: ACETAMINOPHEN\OXYCODONE HYDROCHLORIDE
  2. LYRICA [Suspect]
     Active Substance: PREGABALIN
     Indication: HYPOAESTHESIA
     Dates: start: 201603, end: 201604
  3. D3 VITAMIN [Concomitant]
  4. LYRICA [Suspect]
     Active Substance: PREGABALIN
     Indication: PAIN IN EXTREMITY
     Dates: start: 201603, end: 201604
  5. VITAMIN B [Concomitant]
     Active Substance: VITAMIN B
  6. HYDROCHLOROZIDE [Concomitant]
  7. PRILOSEC [Concomitant]
     Active Substance: OMEPRAZOLE MAGNESIUM
  8. MORPHINE [Concomitant]
     Active Substance: MORPHINE

REACTIONS (3)
  - Weight increased [None]
  - Fatigue [None]
  - Weight loss poor [None]

NARRATIVE: CASE EVENT DATE: 201603
